FAERS Safety Report 6634215-9 (Version None)
Quarter: 2010Q1

REPORT INFORMATION
  Report Type: 
  Country: None (occurrence: None)
  Receive Date: 20100315
  Receipt Date: 20100302
  Transmission Date: 20100710
  Serious: Yes (Other)
  Sender: FDA-Public Use
  Company Number: PHHY2010BR12149

PATIENT
  Sex: Female

DRUGS (5)
  1. FORASEQ [Suspect]
     Indication: ASTHMA
     Dosage: TWICE A DAY
     Dates: start: 20100115
  2. HORMONES (NATIFA) [Concomitant]
     Dosage: UNK
  3. ENALAPRIL MALEATE [Concomitant]
     Indication: HYPERTENSION
     Dosage: 10 MG
  4. ATENOLOL [Concomitant]
     Dosage: 25 MG
  5. CRESTOR [Concomitant]
     Dosage: 1 MG

REACTIONS (3)
  - DYSPNOEA [None]
  - FATIGUE [None]
  - MENORRHAGIA [None]
